FAERS Safety Report 9279978 (Version 2)
Quarter: 2013Q2

REPORT INFORMATION
  Report Type: Report from Study
  Country: IN (occurrence: IN)
  Receive Date: 20130509
  Receipt Date: 20130523
  Transmission Date: 20140414
  Serious: Yes (Other)
  Sender: FDA-Public Use
  Company Number: IN-ROCHE-1220634

PATIENT
  Age: 57 Year
  Sex: Male

DRUGS (2)
  1. LUCENTIS [Suspect]
     Indication: DIABETIC RETINAL OEDEMA
     Route: 050
     Dates: start: 20130322
  2. INSULIN [Concomitant]

REACTIONS (2)
  - Wrong technique in drug usage process [Unknown]
  - Eye haemorrhage [Not Recovered/Not Resolved]
